FAERS Safety Report 20102963 (Version 3)
Quarter: 2022Q4

REPORT INFORMATION
  Report Type: Spontaneous
  Country: US (occurrence: US)
  Receive Date: 20211123
  Receipt Date: 20221011
  Transmission Date: 20230113
  Serious: No
  Sender: FDA-Public Use
  Company Number: US-PFIZER INC-202101448482

PATIENT
  Age: 71 Year

DRUGS (1)
  1. TOVIAZ [Suspect]
     Active Substance: FESOTERODINE FUMARATE
     Dosage: UNK

REACTIONS (6)
  - Aphasia [Unknown]
  - Sciatica [Unknown]
  - Spinal stenosis [Unknown]
  - Gait disturbance [Unknown]
  - Hypersensitivity [Unknown]
  - Dysphonia [Unknown]

NARRATIVE: CASE EVENT DATE: 20211025
